FAERS Safety Report 7758917-6 (Version None)
Quarter: 2011Q3

REPORT INFORMATION
  Report Type: 
  Country: None (occurrence: None)
  Receive Date: 20110919
  Receipt Date: 20110908
  Transmission Date: 20111222
  Serious: Yes (Hospitalization)
  Sender: FDA-Public Use
  Company Number: FR-ASTELLAS-2011EU005806

PATIENT
  Sex: Male

DRUGS (3)
  1. PREDNISOLONE [Concomitant]
     Dosage: UNK
     Route: 065
  2. MYCOPHENOLATE MOFETIL (CELLCEPT) [Concomitant]
     Dosage: UNK
     Route: 065
  3. PROGRAF [Suspect]
     Indication: RENAL TRANSPLANT
     Dosage: 6 MG, UNKNOWN/D
     Route: 048
     Dates: start: 20080905

REACTIONS (2)
  - TRANSPLANT REJECTION [None]
  - ANOGENITAL WARTS [None]
